FAERS Safety Report 6397609-5 (Version None)
Quarter: 2009Q4

REPORT INFORMATION
  Report Type: 
  Country: None (occurrence: None)
  Receive Date: 20091012
  Receipt Date: 20090929
  Transmission Date: 20100525
  Serious: No
  Sender: FDA-Public Use
  Company Number: PHHY2009GB40272

PATIENT
  Sex: Male

DRUGS (2)
  1. CLOZARIL [Suspect]
     Indication: SCHIZOPHRENIA
     Dosage: 100MG MANE, 125MG NOCTE
     Dates: start: 20090902
  2. CLOZARIL [Suspect]
     Dosage: 225 MG (DOUBLE DOSE) IN THE EVENING
     Dates: start: 20090911

REACTIONS (6)
  - CHEST PAIN [None]
  - COUGH [None]
  - DRUG ADMINISTRATION ERROR [None]
  - SALIVARY HYPERSECRETION [None]
  - SOMNOLENCE [None]
  - TACHYCARDIA [None]
